FAERS Safety Report 4486390-2 (Version None)
Quarter: 2004Q4

REPORT INFORMATION
  Report Type: 
  Country: None (occurrence: None)
  Receive Date: 20041026
  Receipt Date: 20041026
  Transmission Date: 20050328
  Serious: Yes (Disabling)
  Sender: FDA-Public Use
  Company Number: None

PATIENT
  Age: 33 Year
  Sex: Female
  Weight: 106.3685 kg

DRUGS (1)
  1. LEVOTHYROXIN   75MCG [Suspect]
     Indication: HYPOTHYROIDISM
     Dates: start: 20040901, end: 20041020

REACTIONS (2)
  - CONDITION AGGRAVATED [None]
  - DIZZINESS [None]
